FAERS Safety Report 14599891 (Version 1)
Quarter: 2018Q1

REPORT INFORMATION
  Report Type: Spontaneous
  Country: US (occurrence: US)
  Receive Date: 20180305
  Receipt Date: 20180305
  Transmission Date: 20180509
  Serious: No
  Sender: FDA-Public Use
  Company Number: US-JNJFOC-20180229361

PATIENT
  Age: 50 Year
  Sex: Female
  Weight: 120.2 kg

DRUGS (3)
  1. WOMENS ROGAINE UNSCENTED [Suspect]
     Active Substance: MINOXIDIL
     Indication: PRODUCT USED FOR UNKNOWN INDICATION
     Dosage: HALF CAPFUL AMOUNT
     Route: 061
     Dates: start: 20180213, end: 20180219
  2. MULTIVITAMINS [Concomitant]
     Active Substance: VITAMINS
     Indication: ROUTINE HEALTH MAINTENANCE
     Route: 065
  3. WOMENS ROGAINE UNSCENTED [Suspect]
     Active Substance: MINOXIDIL
     Route: 061

REACTIONS (3)
  - Pain of skin [Recovering/Resolving]
  - Erythema [Recovered/Resolved]
  - Skin irritation [Recovering/Resolving]

NARRATIVE: CASE EVENT DATE: 20180217
